FAERS Safety Report 9704756 (Version 2)
Quarter: 2013Q4

REPORT INFORMATION
  Report Type: Spontaneous
  Country: GB (occurrence: GB)
  Receive Date: 20131122
  Receipt Date: 20131128
  Transmission Date: 20140711
  Serious: Yes (Death)
  Sender: FDA-Public Use
  Company Number: GB-ASTRAZENECA-2013SE85749

PATIENT
  Age: 37 Year
  Sex: Male

DRUGS (25)
  1. OMEPRAZOLE [Suspect]
     Indication: PRODUCT USED FOR UNKNOWN INDICATION
     Route: 048
     Dates: end: 201208
  2. DIAZEPAM [Suspect]
     Indication: PRODUCT USED FOR UNKNOWN INDICATION
     Route: 065
     Dates: end: 201208
  3. MIRTAZAPINE [Suspect]
     Indication: ANXIETY
     Route: 065
     Dates: end: 201208
  4. BUPRENORPHINE [Suspect]
     Indication: DRUG DEPENDENCE
     Route: 065
     Dates: start: 200906, end: 201010
  5. BUPRENORPHINE [Suspect]
     Indication: DRUG DEPENDENCE
     Route: 065
     Dates: start: 200906, end: 201010
  6. BUPRENORPHINE [Suspect]
     Indication: DRUG DEPENDENCE
     Route: 065
     Dates: start: 201102, end: 201106
  7. BUPRENORPHINE [Suspect]
     Indication: DRUG DEPENDENCE
     Route: 065
     Dates: start: 201102, end: 201106
  8. BUPRENORPHINE [Suspect]
     Indication: DRUG DEPENDENCE
     Route: 065
     Dates: start: 201106, end: 2012
  9. BUPRENORPHINE [Suspect]
     Indication: DRUG DEPENDENCE
     Route: 065
     Dates: start: 201106, end: 2012
  10. SUBUTEX [Suspect]
     Indication: PRODUCT USED FOR UNKNOWN INDICATION
     Route: 065
     Dates: start: 2012, end: 20120825
  11. SUBUTEX [Suspect]
     Indication: DRUG DEPENDENCE
     Route: 065
     Dates: start: 2012, end: 20120825
  12. SUBUTEX [Suspect]
     Indication: PRODUCT USED FOR UNKNOWN INDICATION
     Route: 065
     Dates: start: 20120830, end: 20120830
  13. SUBUTEX [Suspect]
     Indication: DRUG DEPENDENCE
     Route: 065
     Dates: start: 20120830, end: 20120830
  14. CODEINE [Suspect]
     Indication: BACK PAIN
     Route: 065
     Dates: end: 201208
  15. HEROIN [Suspect]
     Indication: PRODUCT USED FOR UNKNOWN INDICATION
     Route: 065
     Dates: end: 201208
  16. ETHANOL [Suspect]
     Indication: PRODUCT USED FOR UNKNOWN INDICATION
     Route: 065
     Dates: end: 201208
  17. IRON [Suspect]
     Indication: PRODUCT USED FOR UNKNOWN INDICATION
     Route: 065
     Dates: end: 2012
  18. STEROIDS [Suspect]
     Indication: PRODUCT USED FOR UNKNOWN INDICATION
     Route: 065
     Dates: end: 2012
  19. METHADONE [Suspect]
     Indication: PRODUCT USED FOR UNKNOWN INDICATION
     Route: 065
     Dates: start: 200804, end: 200906
  20. METHADONE [Suspect]
     Indication: PRODUCT USED FOR UNKNOWN INDICATION
     Route: 065
     Dates: start: 201010, end: 201102
  21. METHADONE [Suspect]
     Indication: PRODUCT USED FOR UNKNOWN INDICATION
     Route: 065
     Dates: end: 201208
  22. NITRAZEPAM [Suspect]
     Indication: PRODUCT USED FOR UNKNOWN INDICATION
     Route: 065
     Dates: end: 201208
  23. NOSCAPINE [Suspect]
     Indication: PRODUCT USED FOR UNKNOWN INDICATION
     Route: 065
     Dates: end: 201208
  24. PAPAVERINE [Suspect]
     Indication: PRODUCT USED FOR UNKNOWN INDICATION
     Route: 065
     Dates: end: 201208
  25. WARFARIN [Concomitant]
     Indication: DEEP VEIN THROMBOSIS
     Dates: end: 201208

REACTIONS (5)
  - Overdose [Fatal]
  - Drug abuse [Fatal]
  - Feeling abnormal [Recovered/Resolved]
  - Swelling face [Recovered/Resolved]
  - Drug ineffective [Recovered/Resolved]
